FAERS Safety Report 7198286 (Version 4)
Quarter: 2013Q3

REPORT INFORMATION
  Report Type: Spontaneous
  Country: None (occurrence: None)
  Receive Date: 20091102
  Receipt Date: 20130708
  Transmission Date: 20140515
  Serious: Yes (Hospitalization, Other)
  Sender: FDA-Public Use
  Company Number: AUR-APL-2009-01165

PATIENT
  Age: 30 Year
  Sex: Male

DRUGS (2)
  1. LAMOTRIGINE (LAMOTRIGINE) [Suspect]
     Indication: STATUS EPILEPTICUS
  2. VALPROIC ACID [Suspect]
     Indication: STATUS EPILEPTICUS
     Dosage: 40 MG/KG/DAY, IV; 1000MG PO QD
     Route: 042

REACTIONS (1)
  - Psychotic disorder due to a general medical condition [None]
